FAERS Safety Report 7469030-X (Version None)
Quarter: 2011Q2

REPORT INFORMATION
  Report Type: 
  Country: None (occurrence: None)
  Receive Date: 20110429
  Receipt Date: 20110419
  Transmission Date: 20111010
  Serious: Yes (Other)
  Sender: FDA-Public Use
  Company Number: 2011SP017925

PATIENT
  Sex: Female

DRUGS (1)
  1. NEXIPLANON (ETONOGESTREL /01502301/) [Suspect]
     Indication: PRODUCT USED FOR UNKNOWN INDICATION
     Dates: start: 20110214, end: 20110419

REACTIONS (3)
  - IMPLANT SITE INFECTION [None]
  - PATIENT-DEVICE INCOMPATIBILITY [None]
  - MEDICAL DEVICE SITE REACTION [None]
